FAERS Safety Report 20058641 (Version 1)
Quarter: 2021Q4

REPORT INFORMATION
  Report Type: Spontaneous
  Country: US (occurrence: US)
  Receive Date: 20211111
  Receipt Date: 20211111
  Transmission Date: 20220303
  Serious: Yes (Death)
  Sender: FDA-Public Use
  Company Number: US-TEVA-2021-US-1975040

PATIENT
  Age: 21 Year
  Sex: Female

DRUGS (5)
  1. OXYCODONE [Suspect]
     Active Substance: OXYCODONE
     Indication: Product used for unknown indication
     Route: 065
  2. IBUPROFEN [Suspect]
     Active Substance: IBUPROFEN
     Indication: Product used for unknown indication
     Route: 065
  3. ARIPIPRAZOLE [Suspect]
     Active Substance: ARIPIPRAZOLE
     Indication: Product used for unknown indication
     Route: 065
  4. FLUOXETINE [Suspect]
     Active Substance: FLUOXETINE HYDROCHLORIDE
     Indication: Product used for unknown indication
     Route: 065
  5. PROPRANOLOL [Suspect]
     Active Substance: PROPRANOLOL HYDROCHLORIDE
     Indication: Product used for unknown indication
     Route: 065

REACTIONS (19)
  - Hypotension [Fatal]
  - Toxicity to various agents [Fatal]
  - Electrocardiogram QRS complex prolonged [Fatal]
  - Myocardial injury [Fatal]
  - Ischaemia [Fatal]
  - Acute lung injury [Fatal]
  - Acute respiratory distress syndrome [Fatal]
  - Pneumonitis aspiration [Fatal]
  - Respiratory depression [Fatal]
  - Coma [Fatal]
  - Depressed level of consciousness [Fatal]
  - Hypoglycaemia [Fatal]
  - Metabolic acidosis [Fatal]
  - Pancreatitis [Fatal]
  - Chemical burn [Fatal]
  - Gastrointestinal haemorrhage [Fatal]
  - Coagulopathy [Fatal]
  - Thrombocytopenia [Fatal]
  - Acute kidney injury [Fatal]
